FAERS Safety Report 17680388 (Version 1)
Quarter: 2020Q2

REPORT INFORMATION
  Report Type: Spontaneous
  Country: CA (occurrence: CA)
  Receive Date: 20200417
  Receipt Date: 20200417
  Transmission Date: 20200714
  Serious: Yes (Other)
  Sender: FDA-Public Use
  Company Number: CA-TEVA-2020-CA-1223362

PATIENT
  Age: 54 Year
  Sex: Male

DRUGS (1)
  1. LORAZEPAM. [Suspect]
     Active Substance: LORAZEPAM
     Indication: PRODUCT USED FOR UNKNOWN INDICATION
     Route: 065

REACTIONS (8)
  - Acute kidney injury [Unknown]
  - Blister [Unknown]
  - Rhabdomyolysis [Unknown]
  - Hyperkalaemia [Unknown]
  - Overdose [Unknown]
  - Myoglobinuria [Unknown]
  - Peripheral swelling [Unknown]
  - Loss of consciousness [Unknown]
